FAERS Safety Report 25261317 (Version 1)
Quarter: 2025Q2

REPORT INFORMATION
  Report Type: Report from Study
  Country: US (occurrence: US)
  Receive Date: 20250501
  Receipt Date: 20250501
  Transmission Date: 20250717
  Serious: Yes (Hospitalization, Other)
  Sender: ABBVIE
  Company Number: US-ABBVIE-6259159

PATIENT
  Age: 66 Year
  Sex: Male

DRUGS (2)
  1. RINVOQ [Suspect]
     Active Substance: UPADACITINIB
     Indication: Colitis ulcerative
     Dosage: FOR 3 MONTHS(12 WEEKS)
     Route: 048
     Dates: start: 20241126
  2. RINVOQ [Suspect]
     Active Substance: UPADACITINIB
     Indication: Colitis ulcerative
     Dosage: STRENGTH;30 MG
     Route: 048
     Dates: start: 2025

REACTIONS (2)
  - Gallbladder disorder [Unknown]
  - Flatulence [Unknown]

NARRATIVE: CASE EVENT DATE: 20250301
